FAERS Safety Report 9322944 (Version 2)
Quarter: 2013Q2

REPORT INFORMATION
  Report Type: Spontaneous
  Country: BE (occurrence: BE)
  Receive Date: 20130603
  Receipt Date: 20130624
  Transmission Date: 20140414
  Serious: Yes (Hospitalization, Other)
  Sender: FDA-Public Use
  Company Number: BE-AMGEN-BELSP2013038643

PATIENT
  Age: 79 Year
  Sex: Male

DRUGS (4)
  1. ENBREL [Suspect]
     Indication: RHEUMATOID ARTHRITIS
     Dosage: 50 MG, WEEKLY
     Route: 058
     Dates: start: 201301, end: 20130531
  2. ZANTAC [Concomitant]
     Dosage: 300 MG, UNK
     Route: 048
  3. MEDROL                             /00049601/ [Concomitant]
     Dosage: 2 MG, 1X/DAY
     Route: 048
     Dates: end: 20130417
  4. METHOTREXATE [Concomitant]
     Indication: RHEUMATOID ARTHRITIS
     Dosage: UNK
     Dates: start: 201301

REACTIONS (1)
  - Cerebrovascular accident [Recovered/Resolved with Sequelae]
